FAERS Safety Report 19812827 (Version 1)
Quarter: 2021Q3

REPORT INFORMATION
  Report Type: Spontaneous
  Country: CA (occurrence: CA)
  Receive Date: 20210910
  Receipt Date: 20210910
  Transmission Date: 20211014
  Serious: Yes (Death)
  Sender: FDA-Public Use
  Company Number: CA-TEVA-2021-CA-1949424

PATIENT
  Age: 11 Year
  Sex: Male
  Weight: 25 kg

DRUGS (15)
  1. LORBRENA [Suspect]
     Active Substance: LORLATINIB
     Indication: NEUROBLASTOMA RECURRENT
     Dosage: 100 MILLIGRAM DAILY;
     Route: 048
  2. CANNABIDIOL [Suspect]
     Active Substance: CANNABIDIOL
     Indication: PAIN
     Route: 065
  3. DINUTUXIMAB [Suspect]
     Active Substance: DINUTUXIMAB
     Indication: NEUROBLASTOMA RECURRENT
     Route: 065
  4. DINUTUXIMAB [Suspect]
     Active Substance: DINUTUXIMAB
     Route: 042
  5. LORAZEPAM. [Suspect]
     Active Substance: LORAZEPAM
     Indication: ANXIETY
     Route: 042
  6. FAMOTIDINE. [Suspect]
     Active Substance: FAMOTIDINE
     Indication: GASTRIC DISORDER
     Route: 065
  7. DINUTUXIMAB [Suspect]
     Active Substance: DINUTUXIMAB
     Route: 065
  8. IRINOTECAN HYDROCHLORIDE. [Suspect]
     Active Substance: IRINOTECAN HYDROCHLORIDE
     Indication: NEUROBLASTOMA RECURRENT
     Route: 065
  9. TEMOZOLOMIDE. [Suspect]
     Active Substance: TEMOZOLOMIDE
     Indication: NEUROBLASTOMA RECURRENT
     Route: 065
  10. HYDROMORPHONE [Suspect]
     Active Substance: HYDROMORPHONE
     Indication: PAIN
     Route: 065
  11. DEXAMETHASONE SODIUM PHOSPHATE. [Suspect]
     Active Substance: DEXAMETHASONE SODIUM PHOSPHATE
     Indication: NEOPLASM PROGRESSION
     Route: 065
  12. GABAPENTIN. [Suspect]
     Active Substance: GABAPENTIN
     Indication: PAIN
     Route: 065
  13. DINUTUXIMAB [Suspect]
     Active Substance: DINUTUXIMAB
     Indication: METASTASES TO LIVER
     Route: 065
  14. DINUTUXIMAB [Suspect]
     Active Substance: DINUTUXIMAB
     Indication: METASTASES TO BONE
     Route: 065
  15. METHADONE HYDROCHLORIDE. [Suspect]
     Active Substance: METHADONE HYDROCHLORIDE
     Indication: PAIN
     Route: 065

REACTIONS (12)
  - Leukocytosis [Fatal]
  - Metastases to spine [Fatal]
  - Pallor [Fatal]
  - Malignant cranial nerve neoplasm [Fatal]
  - Thrombocytopenia [Fatal]
  - Anaemia [Fatal]
  - Metastases to liver [Fatal]
  - Nerve compression [Fatal]
  - Fatigue [Fatal]
  - Retro-orbital neoplasm [Fatal]
  - Neuroblastoma recurrent [Fatal]
  - Off label use [Fatal]
